FAERS Safety Report 15053528 (Version 1)
Quarter: 2018Q2

REPORT INFORMATION
  Report Type: Report from Study
  Country: US (occurrence: US)
  Receive Date: 20180622
  Receipt Date: 20180622
  Transmission Date: 20180711
  Serious: No
  Sender: FDA-Public Use
  Company Number: US-AMGEN-USASL2016071410

PATIENT
  Age: 12 Year
  Sex: Female

DRUGS (4)
  1. NPLATE [Suspect]
     Active Substance: ROMIPLOSTIM
     Indication: IMMUNE THROMBOCYTOPENIC PURPURA
     Dosage: 500 MUG, UNK
     Route: 065
     Dates: start: 201605
  2. PROMACTA [Concomitant]
     Active Substance: ELTROMBOPAG OLAMINE
     Dosage: UNK
     Dates: end: 201605
  3. PAROXETINE. [Concomitant]
     Active Substance: PAROXETINE
     Dosage: 30 MG, UNK
  4. LYSTEDA [Concomitant]
     Active Substance: TRANEXAMIC ACID

REACTIONS (3)
  - Platelet count decreased [Unknown]
  - Off label use [Unknown]
  - Drug ineffective [Unknown]

NARRATIVE: CASE EVENT DATE: 2016
